FAERS Safety Report 6713658-9 (Version None)
Quarter: 2010Q2

REPORT INFORMATION
  Report Type: 
  Country: None (occurrence: None)
  Receive Date: 20100506
  Receipt Date: 20100429
  Transmission Date: 20101027
  Serious: Yes (Other)
  Sender: FDA-Public Use
  Company Number: B0651370A

PATIENT
  Sex: Male
  Weight: 95 kg

DRUGS (4)
  1. AVODART [Suspect]
     Indication: DRUG USE FOR UNKNOWN INDICATION
     Route: 065
  2. NITROGLYCERIN [Concomitant]
  3. INOSINE [Concomitant]
  4. ACETYLSALICYLIC ACID [Concomitant]

REACTIONS (3)
  - ABDOMINAL PAIN [None]
  - PAIN [None]
  - TESTICULAR PAIN [None]
